FAERS Safety Report 14194775 (Version 1)
Quarter: 2017Q4

REPORT INFORMATION
  Report Type: Spontaneous
  Country: US (occurrence: None)
  Receive Date: 20171115
  Receipt Date: 20171115
  Transmission Date: 20180321
  Serious: Yes (Hospitalization)
  Sender: FDA-Public Use
  Company Number: None

PATIENT
  Age: 80 Year
  Sex: Female
  Weight: 51.8 kg

DRUGS (3)
  1. 5-FLUOROURACIL (5-FU) [Suspect]
     Active Substance: FLUOROURACIL
     Dates: end: 20171104
  2. LEUCOVORIN CALCIUM. [Suspect]
     Active Substance: LEUCOVORIN CALCIUM
     Dates: end: 20171102
  3. ELOXATIN [Suspect]
     Active Substance: OXALIPLATIN
     Dates: end: 20171102

REACTIONS (7)
  - Bacterial test positive [None]
  - Diarrhoea [None]
  - Blood urea increased [None]
  - Blood creatinine increased [None]
  - Mental status changes [None]
  - White blood cells urine positive [None]
  - Protein urine present [None]

NARRATIVE: CASE EVENT DATE: 20171105
